FAERS Safety Report 4466351-X (Version None)
Quarter: 2004Q4

REPORT INFORMATION
  Report Type: 
  Country: None (occurrence: None)
  Receive Date: 20041005
  Receipt Date: 20040721
  Transmission Date: 20050328
  Serious: Yes (Other)
  Sender: FDA-Public Use
  Company Number: DE-GLAXOSMITHKLINE-D0044301A

PATIENT
  Age: 32 Year
  Sex: Male

DRUGS (1)
  1. QUILONUM RETARD [Suspect]
     Indication: BIPOLAR I DISORDER
     Dosage: 1.5TAB TWICE PER DAY
     Route: 048
     Dates: start: 19970601

REACTIONS (2)
  - ASPERMIA [None]
  - INFERTILITY MALE [None]
